FAERS Safety Report 7015258-2 (Version None)
Quarter: 2010Q3

REPORT INFORMATION
  Report Type: 
  Country: None (occurrence: None)
  Receive Date: 20100927
  Receipt Date: 20100922
  Transmission Date: 20110219
  Serious: Yes (Other)
  Sender: FDA-Public Use
  Company Number: GB-AMGEN-QUU440356

PATIENT
  Age: 57 Year
  Sex: Female
  Weight: 71 kg

DRUGS (4)
  1. ENBREL [Suspect]
     Indication: RHEUMATOID ARTHRITIS
     Route: 058
     Dates: start: 20040601
  2. METHOTREXATE [Concomitant]
     Indication: RHEUMATOID ARTHRITIS
     Route: 048
  3. OMEPRAZOLE [Concomitant]
     Dosage: UNKNOWN
     Route: 048
  4. FOLIC ACID [Concomitant]
     Route: 048

REACTIONS (2)
  - CELLULITIS [None]
  - IMMUNOSUPPRESSION [None]
